FAERS Safety Report 6793295-0 (Version None)
Quarter: 2010Q2

REPORT INFORMATION
  Report Type: 
  Country: None (occurrence: None)
  Receive Date: 20100624
  Receipt Date: 20091029
  Transmission Date: 20101027
  Serious: Yes (Death)
  Sender: FDA-Public Use
  Company Number: US-MYLANLABS-2009S1019101

PATIENT
  Age: 49 Year
  Sex: Female

DRUGS (13)
  1. CLOZAPINE [Suspect]
     Route: 048
     Dates: start: 20080430, end: 20090713
  2. ALPRAZOLAM [Concomitant]
  3. NORVASC [Concomitant]
  4. BACLOFEN [Concomitant]
  5. CLONAZEPAM [Concomitant]
  6. DICYCLOMINE [Concomitant]
  7. LASIX [Concomitant]
  8. AMITIZA [Concomitant]
  9. ATROVENT [Concomitant]
  10. LUNESTA [Concomitant]
  11. PHENOBARBITAL [Concomitant]
  12. DILANTIN [Concomitant]
  13. LEVOTHYROXINE [Concomitant]

REACTIONS (1)
  - DEATH [None]
